FAERS Safety Report 19106993 (Version 2)
Quarter: 2021Q3

REPORT INFORMATION
  Report Type: Spontaneous
  Country: PT (occurrence: PT)
  Receive Date: 20210408
  Receipt Date: 20210816
  Transmission Date: 20211014
  Serious: Yes (Death, Hospitalization)
  Sender: FDA-Public Use
  Company Number: PT-PFIZER INC-2021322534

PATIENT
  Age: 84 Year
  Sex: Male
  Weight: 65 kg

DRUGS (17)
  1. METAMIZOLE MAGNESIUM [Concomitant]
     Active Substance: METAMIZOLE MAGNESIUM
  2. ALFENTANIL. [Concomitant]
     Active Substance: ALFENTANIL
     Dosage: UNK
     Route: 042
  3. SUCRALFATE. [Concomitant]
     Active Substance: SUCRALFATE
  4. LEVOTHYROXINE SODIUM. [Concomitant]
     Active Substance: LEVOTHYROXINE SODIUM
  5. ROCURONIUM BROMIDE. [Concomitant]
     Active Substance: ROCURONIUM BROMIDE
  6. ACETYLSALICYLIC ACID [Concomitant]
     Active Substance: ASPIRIN
  7. HYDROCORTISONE SODIUM SUCCINATE [Suspect]
     Active Substance: HYDROCORTISONE SODIUM SUCCINATE
     Indication: SHOCK
     Dosage: 200 MG, SINGLE (LOADING DOSE ? 100MG, MAINTENANCE DOSE 50MG (6H / 6H))
     Route: 042
     Dates: start: 20210105, end: 20210106
  8. ALFENTANIL. [Concomitant]
     Active Substance: ALFENTANIL
  9. DOMPERIDONE [Concomitant]
     Active Substance: DOMPERIDONE
  10. MIDAZOLAM. [Concomitant]
     Active Substance: MIDAZOLAM
     Dosage: 30 ML  (150 MG CONTINUOUS)
     Route: 042
  11. NOREPINEPHRINE. [Concomitant]
     Active Substance: NOREPINEPHRINE
  12. PIPERACILLIN AND TAZOBACTAM [Concomitant]
     Active Substance: PIPERACILLIN SODIUM\TAZOBACTAM SODIUM
  13. MIDAZOLAM. [Concomitant]
     Active Substance: MIDAZOLAM
  14. METOCLOPRAMIDE. [Concomitant]
     Active Substance: METOCLOPRAMIDE
  15. GLUCOSE [Concomitant]
     Active Substance: DEXTROSE
     Dosage: 500 ML IV SACK
     Route: 042
  16. TERLIPRESSIN [Concomitant]
     Active Substance: TERLIPRESSIN
  17. ERYTHROMYCIN. [Concomitant]
     Active Substance: ERYTHROMYCIN

REACTIONS (1)
  - Hepatic function abnormal [Fatal]

NARRATIVE: CASE EVENT DATE: 20210106
